FAERS Safety Report 5679543-9 (Version None)
Quarter: 2008Q1

REPORT INFORMATION
  Report Type: 
  Country: None (occurrence: None)
  Receive Date: 20080325
  Receipt Date: 20080313
  Transmission Date: 20080703
  Serious: Yes (Other)
  Sender: FDA-Public Use
  Company Number: JP-PFIZER INC-2008024243

PATIENT
  Age: 58 Year
  Sex: Male

DRUGS (1)
  1. GABAPEN [Suspect]
     Route: 048

REACTIONS (1)
  - RENAL IMPAIRMENT [None]
